FAERS Safety Report 13994131 (Version 1)
Quarter: 2017Q3

REPORT INFORMATION
  Report Type: Not Available
  Country: US (occurrence: US)
  Receive Date: 20170920
  Receipt Date: 20170920
  Transmission Date: 20171128
  Serious: No
  Sender: FDA-Public Use
  Company Number: US-NEUROCRINE BIOSCIENCES INC.-2017NBI00605

PATIENT
  Age: 57 Year
  Sex: Female

DRUGS (18)
  1. ADDERALL [Concomitant]
     Active Substance: AMPHETAMINE ASPARTATE\AMPHETAMINE SULFATE\DEXTROAMPHETAMINE SACCHARATE\DEXTROAMPHETAMINE SULFATE
  2. CRESTOR [Concomitant]
     Active Substance: ROSUVASTATIN CALCIUM
  3. METFORMIN [Concomitant]
     Active Substance: METFORMIN HYDROCHLORIDE
  4. ENALAPRIL [Concomitant]
     Active Substance: ENALAPRIL
  5. FAMOTIDINE. [Concomitant]
     Active Substance: FAMOTIDINE
  6. TRAZODONE [Concomitant]
     Active Substance: TRAZODONE HYDROCHLORIDE
  7. ASPIRIN. [Concomitant]
     Active Substance: ASPIRIN
  8. DIAZEPAM. [Concomitant]
     Active Substance: DIAZEPAM
  9. FENOFIBRATE. [Concomitant]
     Active Substance: FENOFIBRATE
  10. NALTREXONE [Concomitant]
     Active Substance: NALTREXONE
  11. ZETIA [Concomitant]
     Active Substance: EZETIMIBE
  12. REXULTI [Concomitant]
     Active Substance: BREXPIPRAZOLE
  13. BELSOMRA [Concomitant]
     Active Substance: SUVOREXANT
  14. INGREZZA [Suspect]
     Active Substance: VALBENAZINE
     Indication: PRODUCT USED FOR UNKNOWN INDICATION
     Route: 048
     Dates: start: 20170711
  15. SEROQUEL [Concomitant]
     Active Substance: QUETIAPINE FUMARATE
  16. BUPROPION. [Concomitant]
     Active Substance: BUPROPION
  17. COLACE [Concomitant]
     Active Substance: DOCUSATE SODIUM
  18. LAMOTRIGINE. [Concomitant]
     Active Substance: LAMOTRIGINE

REACTIONS (1)
  - Depression [Not Recovered/Not Resolved]

NARRATIVE: CASE EVENT DATE: 2017
